FAERS Safety Report 17860181 (Version 1)
Quarter: 2020Q2

REPORT INFORMATION
  Report Type: Spontaneous
  Country: US (occurrence: US)
  Receive Date: 20200604
  Receipt Date: 20200604
  Transmission Date: 20200714
  Serious: No
  Sender: FDA-Public Use
  Company Number: US-BAYER-2020-105298

PATIENT
  Sex: Female

DRUGS (4)
  1. DIPHENHYDRAMINE. [Suspect]
     Active Substance: DIPHENHYDRAMINE
  2. VITAMIN D3 [Concomitant]
     Active Substance: CHOLECALCIFEROL
  3. CLARITIN [Suspect]
     Active Substance: LORATADINE
     Indication: TINNITUS
     Dosage: 1 DF
     Route: 048
     Dates: start: 20200601, end: 20200602
  4. ONE A DAY WOMEN^S [Concomitant]
     Active Substance: MINERALS\VITAMINS
     Route: 065

REACTIONS (4)
  - Off label use [Unknown]
  - Somnolence [Not Recovered/Not Resolved]
  - Product use in unapproved indication [Unknown]
  - Abnormal dreams [Not Recovered/Not Resolved]

NARRATIVE: CASE EVENT DATE: 20200601
